FAERS Safety Report 10592567 (Version 3)
Quarter: 2015Q1

REPORT INFORMATION
  Report Type: Spontaneous
  Country: US (occurrence: US)
  Receive Date: 20141119
  Receipt Date: 20150119
  Transmission Date: 20150720
  Serious: No
  Sender: FDA-Public Use
  Company Number: US-PFIZER INC-2014317128

PATIENT
  Sex: Male

DRUGS (1)
  1. GABAPENTIN. [Suspect]
     Active Substance: GABAPENTIN
     Indication: NYSTAGMUS
     Dosage: 18 ML, (THREE DOSES OF 6 ML PER DOSE)
     Dates: start: 20140915

REACTIONS (3)
  - Dry mouth [Unknown]
  - Drug ineffective for unapproved indication [Unknown]
  - Somnolence [Unknown]
